FAERS Safety Report 6253739-X (Version None)
Quarter: 2009Q2

REPORT INFORMATION
  Report Type: 
  Country: None (occurrence: None)
  Receive Date: 20090630
  Receipt Date: 20090609
  Transmission Date: 20091009
  Serious: Yes (Death, Life-Threatening)
  Sender: FDA-Public Use
  Company Number: JPI-P-007441

PATIENT
  Age: 46 Year
  Sex: Female

DRUGS (11)
  1. XYREM [Suspect]
     Indication: INSOMNIA
     Dosage: 1 GM (0.5 GM, 2 IN 1 D), ORAL, 1.625 GM (1.625 GM, PATIENT ALSO TOOK AS NEEDED), ORAL
     Route: 048
     Dates: start: 20090101, end: 20090524
  2. XYREM [Suspect]
     Indication: INSOMNIA
     Dosage: 1 GM (0.5 GM, 2 IN 1 D), ORAL, 1.625 GM (1.625 GM, PATIENT ALSO TOOK AS NEEDED), ORAL
     Route: 048
     Dates: start: 20090316
  3. OLANZAPINE [Concomitant]
  4. RAMELTEON [Concomitant]
  5. DULOXETINE HYDROCHLORIDE [Concomitant]
  6. GABAPENTIN [Concomitant]
  7. ROPINIROLE [Concomitant]
  8. BUPROPION HCL [Concomitant]
  9. ALPRAZOLAM [Concomitant]
  10. AMANTADINE HCL [Concomitant]
  11. LAMOTRIGINE [Concomitant]

REACTIONS (6)
  - ARRHYTHMIA [None]
  - CARDIAC DISORDER [None]
  - MYOCARDIAL INFARCTION [None]
  - RESPIRATORY FAILURE [None]
  - SLEEP APNOEA SYNDROME [None]
  - TREMOR [None]
